FAERS Safety Report 10187303 (Version 2)
Quarter: 2014Q2

REPORT INFORMATION
  Report Type: Spontaneous
  Country: US (occurrence: US)
  Receive Date: 20140522
  Receipt Date: 20140626
  Transmission Date: 20141212
  Serious: No
  Sender: FDA-Public Use
  Company Number: US-009507513-1405USA008176

PATIENT
  Age: 24 Year
  Sex: Female
  Weight: 74.9 kg

DRUGS (1)
  1. NEXPLANON [Suspect]
     Dosage: 1 ROD, UNK
     Route: 059
     Dates: start: 20140515

REACTIONS (3)
  - Device deployment issue [Unknown]
  - Medical device complication [Unknown]
  - No adverse event [Unknown]
